FAERS Safety Report 8797329 (Version 1)
Quarter: 2012Q4

REPORT INFORMATION
  Report Type: 
  Country: US (occurrence: US)
  Receive Date: 20120919
  Receipt Date: 20120919
  Transmission Date: 20130627
  Serious: Yes (Death)
  Sender: FDA-Public Use
  Company Number: US-ROCHE-1129225

PATIENT
  Sex: Male

DRUGS (5)
  1. AVASTIN [Suspect]
     Indication: COLON CANCER
     Route: 065
     Dates: start: 200407, end: 200411
  2. AVASTIN [Suspect]
     Route: 065
     Dates: start: 200412
  3. FLUOROURACIL [Concomitant]
     Route: 065
     Dates: start: 200402, end: 200409
  4. OXALIPLATIN [Concomitant]
     Route: 065
     Dates: start: 200402, end: 200409
  5. FOLINIC ACID [Concomitant]
     Route: 065
     Dates: start: 200402

REACTIONS (3)
  - Death [Fatal]
  - Infection [Unknown]
  - Disease progression [Unknown]
